FAERS Safety Report 5901885-X (Version None)
Quarter: 2008Q3

REPORT INFORMATION
  Report Type: 
  Country: None (occurrence: None)
  Receive Date: 20080929
  Receipt Date: 20080922
  Transmission Date: 20090109
  Serious: Yes (Other)
  Sender: FDA-Public Use
  Company Number: PHHY2008IT22382

PATIENT
  Sex: Male

DRUGS (3)
  1. ZOMETA [Suspect]
     Indication: METASTASES TO BONE
     Dosage: 4 MG/MONTH
     Route: 042
     Dates: start: 20070503, end: 20080321
  2. DECAPEPTYL [Concomitant]
     Dosage: 11.25 MG
  3. TAXOTERE [Concomitant]
     Indication: PROSTATE CANCER
     Dosage: 75 MG/M2

REACTIONS (1)
  - OSTEONECROSIS [None]
